FAERS Safety Report 7330789-3 (Version None)
Quarter: 2011Q1

REPORT INFORMATION
  Report Type: 
  Country: None (occurrence: None)
  Receive Date: 20110304
  Receipt Date: 20110302
  Transmission Date: 20110831
  Serious: No
  Sender: FDA-Public Use
  Company Number: US-PFIZER INC-2011046447

PATIENT
  Sex: Female
  Weight: 72.6 kg

DRUGS (7)
  1. QUINAPRIL [Concomitant]
     Dosage: UNK
  2. LIPITOR [Suspect]
     Indication: HYPERTENSION
     Dosage: 10 MG, DAILY
     Route: 048
  3. ATROPINE [Concomitant]
     Dosage: UNK
  4. CHLORTHALIDONE [Concomitant]
     Dosage: UNK
  5. PROPRANOLOL [Concomitant]
     Dosage: UNK
  6. ACETYLSALICYLIC ACID [Concomitant]
     Dosage: 81 MG, DAILY
  7. NORVASC [Concomitant]
     Dosage: UNK

REACTIONS (1)
  - MYALGIA [None]
